FAERS Safety Report 21314628 (Version 1)
Quarter: 2022Q3

REPORT INFORMATION
  Report Type: Spontaneous
  Country: US (occurrence: None)
  Receive Date: 20220909
  Receipt Date: 20220909
  Transmission Date: 20221027
  Serious: No
  Sender: FDA-Public Use
  Company Number: US-ARIS GLOBAL-202110-1867

PATIENT
  Sex: Female

DRUGS (29)
  1. OXERVATE [Suspect]
     Active Substance: CENEGERMIN-BKBJ
     Indication: Neurotrophic keratopathy
     Route: 047
     Dates: start: 20211005
  2. OXERVATE [Suspect]
     Active Substance: CENEGERMIN-BKBJ
     Indication: Neurotrophic keratopathy
  3. PROBIOTIC 100B CELL [Concomitant]
  4. CINNAMON [Concomitant]
     Active Substance: CINNAMON
  5. MAGNESIUM [Concomitant]
     Active Substance: MAGNESIUM
  6. HERBALS\TURMERIC [Concomitant]
     Active Substance: HERBALS\TURMERIC
  7. LUTEIN [Concomitant]
     Active Substance: LUTEIN
  8. FISH OIL [Concomitant]
     Active Substance: FISH OIL
     Dosage: 100-150 MG CAPSULE
  9. MUCINEX [Concomitant]
     Active Substance: GUAIFENESIN
     Dosage: EXTENDED RELEASE 12 HOURS
  10. SUDAFED [Concomitant]
     Active Substance: PSEUDOEPHEDRINE HYDROCHLORIDE
  11. TYLENOL EXTRA STRENGTH [Concomitant]
     Active Substance: ACETAMINOPHEN
  12. LEVOTHYROXINE [Concomitant]
     Active Substance: LEVOTHYROXINE
  13. MELATONIN [Concomitant]
     Active Substance: MELATONIN
  14. LUTEIN [Concomitant]
     Active Substance: LUTEIN
  15. METHOCARBAMOL [Concomitant]
     Active Substance: METHOCARBAMOL
  16. OMEPRAZOLE\SODIUM BICARBONATE [Concomitant]
     Active Substance: OMEPRAZOLE\SODIUM BICARBONATE
  17. PILOCARPINE HYDROCHLORIDE [Concomitant]
     Active Substance: PILOCARPINE HYDROCHLORIDE
  18. THERATEARS [Concomitant]
     Active Substance: CARBOXYMETHYLCELLULOSE SODIUM
     Dosage: 0.25 % DROPERETTE
  19. SIMVASTATIN [Concomitant]
     Active Substance: SIMVASTATIN
  20. ZAFIRLUKAST [Concomitant]
     Active Substance: ZAFIRLUKAST
  21. IPRATROPIUM BROMIDE [Concomitant]
     Active Substance: IPRATROPIUM BROMIDE
     Dosage: 21 MCG SPRAY
  22. PROVENTIL HFA [Concomitant]
     Active Substance: ALBUTEROL SULFATE
     Dosage: 90 MCG HFA
  23. SPIRIVA RESPIMAT [Concomitant]
     Active Substance: TIOTROPIUM BROMIDE
  24. REFRESH CLASSIC [Concomitant]
     Active Substance: POLYVINYL ALCOHOL\POVIDONE
  25. PATADAY [Concomitant]
     Active Substance: OLOPATADINE HYDROCHLORIDE
  26. RESTASIS [Concomitant]
     Active Substance: CYCLOSPORINE
     Dosage: 0.05% DROPERETTE
  27. AMOXICILLIN [Concomitant]
     Active Substance: AMOXICILLIN
     Dates: start: 20210815
  28. CIPROFLOXACIN [Concomitant]
     Active Substance: CIPROFLOXACIN
     Dates: start: 20211010
  29. AZITHROMYCIN DIHYDRATE [Concomitant]
     Active Substance: AZITHROMYCIN DIHYDRATE
     Dates: start: 20210801

REACTIONS (1)
  - Sinusitis [Recovering/Resolving]
